FAERS Safety Report 5452702-6 (Version None)
Quarter: 2007Q3

REPORT INFORMATION
  Report Type: 
  Country: None (occurrence: None)
  Receive Date: 20070914
  Receipt Date: 20070905
  Transmission Date: 20080115
  Serious: Yes (Death, Hospitalization)
  Sender: FDA-Public Use
  Company Number: CA-AMGEN-US241966

PATIENT
  Sex: Female

DRUGS (1)
  1. SENSIPAR [Suspect]
     Dates: start: 20060412

REACTIONS (2)
  - HOSPITALISATION [None]
  - RENAL DISORDER [None]
